FAERS Safety Report 5505249-2 (Version None)
Quarter: 2007Q4

REPORT INFORMATION
  Report Type: 
  Country: None (occurrence: None)
  Receive Date: 20071031
  Receipt Date: 20071015
  Transmission Date: 20080405
  Serious: Yes (Other)
  Sender: FDA-Public Use
  Company Number: 162841ISR

PATIENT
  Age: 62 Year
  Sex: Female

DRUGS (1)
  1. BECLOMETHASONE DIPROPIONATE [Suspect]
     Indication: NASAL CONGESTION
     Dosage: 4 (2 ,2 IN 1 D) NASAL
     Route: 045
     Dates: start: 20050223

REACTIONS (1)
  - NASAL SEPTUM PERFORATION [None]
